FAERS Safety Report 23327127 (Version 1)
Quarter: 2023Q4

REPORT INFORMATION
  Report Type: Spontaneous
  Country: PT (occurrence: PT)
  Receive Date: 20231221
  Receipt Date: 20231221
  Transmission Date: 20240110
  Serious: Yes (Other)
  Sender: FDA-Public Use
  Company Number: PT-VIIV HEALTHCARE LIMITED-PT2023EME176609

PATIENT

DRUGS (1)
  1. TRIUMEQ [Suspect]
     Active Substance: ABACAVIR SULFATE\DOLUTEGRAVIR SODIUM\LAMIVUDINE
     Indication: HIV infection
     Dosage: UNK
     Dates: start: 2020

REACTIONS (5)
  - Gonorrhoea [Unknown]
  - Syphilis [Unknown]
  - Proctitis chlamydial [Unknown]
  - Disease recurrence [Unknown]
  - Blood HIV RNA increased [Recovered/Resolved]

NARRATIVE: CASE EVENT DATE: 20200101
